FAERS Safety Report 14773225 (Version 1)
Quarter: 2018Q2

REPORT INFORMATION
  Report Type: Spontaneous
  Country: US (occurrence: US)
  Receive Date: 20180418
  Receipt Date: 20180418
  Transmission Date: 20180711
  Serious: Yes (Other)
  Sender: FDA-Public Use
  Company Number: US-TEVA-821573USA

PATIENT

DRUGS (1)
  1. ESCITALOPRAM [Suspect]
     Active Substance: ESCITALOPRAM OXALATE
     Route: 065

REACTIONS (5)
  - Suicidal ideation [Unknown]
  - Product quality issue [Unknown]
  - Depression [Unknown]
  - Nervous system disorder [Unknown]
  - Drug ineffective [Unknown]
